FAERS Safety Report 4962379-1 (Version None)
Quarter: 2006Q2

REPORT INFORMATION
  Report Type: 
  Country: None (occurrence: None)
  Receive Date: 20060404
  Receipt Date: 20060323
  Transmission Date: 20061013
  Serious: Yes (Hospitalization, Other)
  Sender: FDA-Public Use
  Company Number: US-AMGEN-US173606

PATIENT
  Sex: Female

DRUGS (11)
  1. ARANESP [Suspect]
     Indication: ANAEMIA OF MALIGNANT DISEASE
     Dates: start: 20041202, end: 20060119
  2. PROCRIT [Suspect]
     Indication: ANAEMIA OF MALIGNANT DISEASE
  3. FLUDARABINE [Concomitant]
     Dates: start: 20060104, end: 20060110
  4. RITUXAN [Concomitant]
  5. NORVASC [Concomitant]
  6. LOZOL [Concomitant]
  7. AGGRENOX [Concomitant]
  8. LEVOTHYROXINE SODIUM [Concomitant]
  9. IRON [Concomitant]
     Route: 048
  10. POTASSIUM [Concomitant]
  11. PANTOPRAZOLE [Concomitant]

REACTIONS (3)
  - ANAEMIA [None]
  - APLASIA PURE RED CELL [None]
  - OCCULT BLOOD POSITIVE [None]
